FAERS Safety Report 5505186-3 (Version None)
Quarter: 2007Q4

REPORT INFORMATION
  Report Type: 
  Country: None (occurrence: None)
  Receive Date: 20071102
  Receipt Date: 20071030
  Transmission Date: 20080405
  Serious: Yes (Other)
  Sender: FDA-Public Use
  Company Number: US-ASTRAZENECA-2007UW23683

PATIENT
  Age: 68 Year
  Sex: Female
  Weight: 84.4 kg

DRUGS (4)
  1. TENORMIN [Suspect]
     Route: 048
  2. TENORMIN [Suspect]
     Route: 048
  3. HYZAAR [Concomitant]
  4. MAXAIR [Concomitant]

REACTIONS (1)
  - HYPERTENSION [None]
